FAERS Safety Report 7541711-9 (Version None)
Quarter: 2011Q2

REPORT INFORMATION
  Report Type: 
  Country: None (occurrence: None)
  Receive Date: 20110524
  Receipt Date: 20110318
  Transmission Date: 20111010
  Serious: No
  Sender: FDA-Public Use
  Company Number: 029538

PATIENT
  Sex: Male
  Weight: 72.6 kg

DRUGS (3)
  1. OMEPRAZOLE [Concomitant]
  2. CIMZIA [Suspect]
     Indication: CROHN'S DISEASE
     Dosage: 200 MG 1X/MONTH, 2 SHOTS OF 200 MG SUBCUTANEOUS
     Route: 058
     Dates: start: 20110318, end: 20110318
  3. M.V.I. [Concomitant]

REACTIONS (5)
  - NAUSEA [None]
  - PALLOR [None]
  - HEART RATE DECREASED [None]
  - HYPERHIDROSIS [None]
  - BLOOD PRESSURE DECREASED [None]
